FAERS Safety Report 18285680 (Version 1)
Quarter: 2020Q3

REPORT INFORMATION
  Report Type: Other
  Country: ES (occurrence: ES)
  Receive Date: 20200918
  Receipt Date: 20200918
  Transmission Date: 20201103
  Serious: Yes (Other)
  Sender: FDA-Public Use
  Company Number: ES-INVATECH-000019

PATIENT
  Age: 10 Year
  Sex: Female

DRUGS (2)
  1. PYRIDOSTIGMINE [Suspect]
     Active Substance: PYRIDOSTIGMINE
     Indication: CONGENITAL MYASTHENIC SYNDROME
     Dosage: 15 MG EVERY 8 HOURS
     Route: 065
  2. PYRIDOSTIGMINE [Suspect]
     Active Substance: PYRIDOSTIGMINE
     Indication: CONGENITAL MYASTHENIC SYNDROME
     Dosage: SINGLE 30 MG DOSE
     Route: 065

REACTIONS (1)
  - Condition aggravated [Recovered/Resolved]
